FAERS Safety Report 11119504 (Version 1)
Quarter: 2015Q2

REPORT INFORMATION
  Report Type: Spontaneous
  Country: JP (occurrence: JP)
  Receive Date: 20150518
  Receipt Date: 20150518
  Transmission Date: 20150821
  Serious: Yes (Hospitalization, Other)
  Sender: FDA-Public Use
  Company Number: JP-SA-2015SA065021

PATIENT
  Age: 64 Year
  Sex: Male
  Weight: 51.5 kg

DRUGS (8)
  1. CALBLOCK [Concomitant]
     Active Substance: AZELNIDIPINE
     Route: 048
     Dates: start: 20150418
  2. ADALAT [Concomitant]
     Active Substance: NIFEDIPINE
     Route: 048
     Dates: start: 20150418
  3. TENELIA [Suspect]
     Active Substance: CITALOPRAM HYDROBROMIDE
     Indication: DIABETES MELLITUS
     Route: 048
     Dates: start: 20150421
  4. TAKEPRON [Suspect]
     Active Substance: LANSOPRAZOLE
     Indication: PROPHYLAXIS AGAINST GASTROINTESTINAL ULCER
     Route: 048
     Dates: start: 20150422
  5. CALFINA [Concomitant]
     Active Substance: ALFACALCIDOL
     Route: 048
     Dates: start: 20150418
  6. ATELEC [Concomitant]
     Active Substance: CILNIDIPINE
     Route: 048
     Dates: start: 20150418
  7. PLAVIX [Suspect]
     Active Substance: CLOPIDOGREL BISULFATE
     Indication: PERIPHERAL ARTERIAL OCCLUSIVE DISEASE
     Route: 048
     Dates: start: 20150318
  8. BAYASPIRIN [Concomitant]
     Active Substance: ASPIRIN
     Route: 048
     Dates: start: 20150418

REACTIONS (2)
  - Hypereosinophilic syndrome [Recovering/Resolving]
  - Acute respiratory failure [Recovering/Resolving]

NARRATIVE: CASE EVENT DATE: 20150407
